FAERS Safety Report 17485369 (Version 1)
Quarter: 2020Q1

REPORT INFORMATION
  Report Type: Report from Study
  Country: US (occurrence: US)
  Receive Date: 20200302
  Receipt Date: 20200302
  Transmission Date: 20200409
  Serious: Yes (Other)
  Sender: FDA-Public Use
  Company Number: US-GILEAD-2020-0453177

PATIENT
  Age: 34 Year
  Sex: Female

DRUGS (2)
  1. VERAPAMIL [Concomitant]
     Active Substance: VERAPAMIL HYDROCHLORIDE
  2. AZTREONAM LYSINE [Suspect]
     Active Substance: AZTREONAM LYSINE
     Indication: CYSTIC FIBROSIS
     Dosage: UNK UNK, TID FOR 28 DAYS ON AND 28 DAYS OFF
     Route: 065
     Dates: start: 20190226

REACTIONS (2)
  - Liver disorder [Unknown]
  - Cystic fibrosis [Unknown]
